FAERS Safety Report 5894771-5 (Version None)
Quarter: 2008Q3

REPORT INFORMATION
  Report Type: 
  Country: None (occurrence: None)
  Receive Date: 20080924
  Receipt Date: 20080501
  Transmission Date: 20090109
  Serious: No
  Sender: FDA-Public Use
  Company Number: US-ASTRAZENECA-2008UW09038

PATIENT
  Age: 46 Year
  Sex: Male
  Weight: 74.8 kg

DRUGS (3)
  1. SEROQUEL [Suspect]
     Indication: ANXIETY
     Route: 048
     Dates: start: 20050101
  2. SEROQUEL [Suspect]
     Indication: DEPRESSION
     Route: 048
     Dates: start: 20050101
  3. PROLIXIN [Concomitant]

REACTIONS (2)
  - SKIN DISCOLOURATION [None]
  - THINKING ABNORMAL [None]
